FAERS Safety Report 4439870-X (Version None)
Quarter: 2004Q3

REPORT INFORMATION
  Report Type: 
  Country: None (occurrence: None)
  Receive Date: 20040831
  Receipt Date: 20040820
  Transmission Date: 20050211
  Serious: Yes (Hospitalization)
  Sender: FDA-Public Use
  Company Number: 2004226757FR

PATIENT
  Age: 47 Year
  Sex: Female

DRUGS (3)
  1. XANAX [Suspect]
     Dosage: 0.25 MG, BID, ORAL
     Route: 048
     Dates: start: 20040528, end: 20040603
  2. STILNOX (ZOLPIDEM) [Suspect]
     Dosage: 10 MG, QD, ORAL
     Route: 048
     Dates: start: 20040528, end: 20040603
  3. CEMAFLAVONE (CHOLINE CITRATE, MAGNESIUM ASCORBATE, CITROFLAVONOID) [Suspect]
     Dosage: ORAL
     Route: 048
     Dates: start: 20040528, end: 20040603

REACTIONS (2)
  - ANGIONEUROTIC OEDEMA [None]
  - HYPERSENSITIVITY [None]
